FAERS Safety Report 14691028 (Version 1)
Quarter: 2018Q1

REPORT INFORMATION
  Report Type: Other
  Country: SE (occurrence: SE)
  Receive Date: 20180328
  Receipt Date: 20180328
  Transmission Date: 20180509
  Serious: Yes (Death)
  Sender: FDA-Public Use
  Company Number: SE-GEHC-2018CSU001131

PATIENT

DRUGS (17)
  1. OMNIPAQUE [Suspect]
     Active Substance: IOHEXOL
     Indication: PRODUCT USED FOR UNKNOWN INDICATION
     Dosage: 71 ML
     Route: 065
  2. TERBINAFIN TEVA [Concomitant]
  3. BETAPRED [Concomitant]
     Active Substance: BETAMETHASONE SODIUM PHOSPHATE
  4. IBUPROFEN. [Concomitant]
     Active Substance: IBUPROFEN
  5. ALVEDON [Concomitant]
     Active Substance: ACETAMINOPHEN
  6. INNOHEP [Concomitant]
     Active Substance: TINZAPARIN SODIUM
  7. GAVISCON                           /00237601/ [Concomitant]
     Active Substance: ALUMINUM HYDROXIDE\MAGNESIUM CARBONATE
  8. CIPROFLOXACIN KRKA [Concomitant]
  9. DIMOR [Concomitant]
     Active Substance: LOPERAMIDE
  10. OMEPRAZOL TEVA                     /00661201/ [Concomitant]
  11. IOMERON [Suspect]
     Active Substance: IOMEPROL
     Indication: PRODUCT USED FOR UNKNOWN INDICATION
     Dosage: 92 ML, SINGLE
     Route: 042
  12. PRIMPERAN [Concomitant]
     Active Substance: METOCLOPRAMIDE HYDROCHLORIDE
  13. CAPECITABINE. [Concomitant]
     Active Substance: CAPECITABINE
  14. LAXIRIVA [Concomitant]
     Active Substance: POLYETHYLENE GLYCOL 3350\POTASSIUM CHLORIDE\SODIUM BICARBONATE\SODIUM CHLORIDE
  15. CORTIMYK [Concomitant]
  16. OXYNORM [Concomitant]
     Active Substance: OXYCODONE HYDROCHLORIDE
  17. FRAGMIN (MED KONSERVERINGSMEDEL) [Concomitant]

REACTIONS (1)
  - Nephropathy toxic [Fatal]

NARRATIVE: CASE EVENT DATE: 20170621
